FAERS Safety Report 6762025-0 (Version None)
Quarter: 2010Q2

REPORT INFORMATION
  Report Type: 
  Country: None (occurrence: None)
  Receive Date: 20100609
  Receipt Date: 20100604
  Transmission Date: 20101027
  Serious: Yes (Disabling)
  Sender: FDA-Public Use
  Company Number: DE-BRISTOL-MYERS SQUIBB COMPANY-13763842

PATIENT
  Age: 46 Year
  Sex: Female
  Weight: 128 kg

DRUGS (5)
  1. PACLITAXEL [Suspect]
     Indication: BREAST CANCER
     Route: 042
     Dates: start: 20050706, end: 20050803
  2. CYCLOPHOSPHAMIDE [Suspect]
     Indication: BREAST CANCER
     Route: 042
     Dates: start: 20050817, end: 20050914
  3. EPIRUBICIN [Suspect]
     Indication: BREAST CANCER
     Route: 042
     Dates: start: 20050524, end: 20050622
  4. LEVOTHYROXINE SODIUM [Concomitant]
     Route: 048
  5. VOLTAREN [Concomitant]
     Route: 048

REACTIONS (1)
  - NERVOUS SYSTEM DISORDER [None]
